FAERS Safety Report 5071693-3 (Version None)
Quarter: 2006Q3

REPORT INFORMATION
  Report Type: 
  Country: None (occurrence: None)
  Receive Date: 20060801
  Receipt Date: 20060712
  Transmission Date: 20061208
  Serious: Yes (Hospitalization)
  Sender: FDA-Public Use
  Company Number: US200605004817

PATIENT
  Age: 38 Year
  Sex: Male
  Weight: 117.9 kg

DRUGS (5)
  1. CYMBALTA [Suspect]
     Indication: ANXIETY
     Dosage: 60 MG, ORAL
     Route: 048
     Dates: start: 20060210, end: 20060507
  2. PRILOSEC [Concomitant]
  3. OMEGA 3 (FISH OIL) [Concomitant]
  4. FOLIC ACID [Concomitant]
  5. AMBIEN [Concomitant]

REACTIONS (1)
  - TRANSIENT ISCHAEMIC ATTACK [None]
